FAERS Safety Report 5194259-3 (Version None)
Quarter: 2006Q4

REPORT INFORMATION
  Report Type: 
  Country: None (occurrence: None)
  Receive Date: 20061228
  Receipt Date: 20061218
  Transmission Date: 20070319
  Serious: Yes (Death, Hospitalization)
  Sender: FDA-Public Use
  Company Number: KR-BOEHRINGER INGELHEIM GMBH, GERMANY-2006-DE-06848GL

PATIENT
  Sex: Male

DRUGS (5)
  1. TELMISARTAN [Suspect]
     Indication: HYPERTENSION
     Route: 048
     Dates: start: 20011123
  2. ROSIGLITAZONE MALEATE [Concomitant]
     Dates: start: 20011023, end: 20020315
  3. GLICLAZIDE [Concomitant]
     Dates: start: 20011023, end: 20020315
  4. CILOSTAZOL [Concomitant]
     Dates: start: 20011023, end: 20020315
  5. METFORMIN HYDROCHLORIDE [Concomitant]
     Dates: start: 20011023, end: 20020315

REACTIONS (1)
  - PNEUMONIA [None]
